FAERS Safety Report 5283921-X (Version None)
Quarter: 2007Q1

REPORT INFORMATION
  Report Type: 
  Country: None (occurrence: None)
  Receive Date: 20070327
  Receipt Date: 20070321
  Transmission Date: 20070707
  Serious: Yes (Other)
  Sender: FDA-Public Use
  Company Number: 237916

PATIENT
  Age: 69 Year
  Sex: Female
  Weight: 72.6 kg

DRUGS (3)
  1. HERCEPTIN [Suspect]
     Indication: BREAST CANCER
     Dosage: 590 MG SINGLE INTRAVENOUS; 444 MG Q3W INTRAVENOUS
     Route: 042
     Dates: start: 20070130, end: 20070130
  2. HERCEPTIN [Suspect]
     Indication: BREAST CANCER
     Dosage: 590 MG SINGLE INTRAVENOUS; 444 MG Q3W INTRAVENOUS
     Route: 042
     Dates: start: 20070220
  3. RADIATION THERAPY (RADIATION THERAPY) [Concomitant]

REACTIONS (8)
  - BLOOD PRESSURE SYSTOLIC INSPIRATORY DECREASED [None]
  - CARDIOMEGALY [None]
  - COUGH [None]
  - DYSPNOEA [None]
  - PERICARDIAL EFFUSION [None]
  - PERICARDIAL FIBROSIS [None]
  - PERICARDITIS [None]
  - PLEURITIC PAIN [None]
